FAERS Safety Report 4764415-4 (Version None)
Quarter: 2005Q3

REPORT INFORMATION
  Report Type: 
  Country: None (occurrence: None)
  Receive Date: 20050906
  Receipt Date: 20050817
  Transmission Date: 20060218
  Serious: Yes (Disabling)
  Sender: FDA-Public Use
  Company Number: 493782

PATIENT
  Age: 45 Year
  Sex: Female

DRUGS (1)
  1. LEVONORGESTREL [Suspect]
     Dosage: 750 MCG ORAL
     Route: 048
     Dates: start: 20050707, end: 20050707

REACTIONS (1)
  - CEREBROVASCULAR ACCIDENT [None]
